FAERS Safety Report 4609404-5 (Version None)
Quarter: 2005Q2

REPORT INFORMATION
  Report Type: 
  Country: None (occurrence: None)
  Receive Date: 20050225
  Receipt Date: 20041215
  Transmission Date: 20051028
  Serious: No
  Sender: FDA-Public Use
  Company Number: 2004US002322

PATIENT
  Age: 41 Year
  Sex: Male
  Weight: 82.1 kg

DRUGS (6)
  1. ALOXI [Suspect]
     Indication: PROPHYLAXIS OF NAUSEA AND VOMITING
     Dosage: 0.25 MG, SINGLE, INTRAVENOUS
     Route: 042
     Dates: start: 20041119, end: 20041119
  2. LORAZEPAM [Concomitant]
  3. CARMUSTINE [Concomitant]
  4. SODIUM CHLORIDE [Concomitant]
  5. DILANTIN [Concomitant]
  6. PHENERGAN [Concomitant]

REACTIONS (3)
  - DRUG INEFFECTIVE [None]
  - NAUSEA [None]
  - VOMITING [None]
